FAERS Safety Report 19946263 (Version 1)
Quarter: 2021Q4

REPORT INFORMATION
  Report Type: Spontaneous
  Country: GB (occurrence: GB)
  Receive Date: 20211012
  Receipt Date: 20211012
  Transmission Date: 20220303
  Serious: Yes (Other)
  Sender: FDA-Public Use
  Company Number: GB-MERCK HEALTHCARE KGAA-9267568

PATIENT
  Age: 68 Year
  Sex: Male

DRUGS (4)
  1. AVELUMAB [Suspect]
     Active Substance: AVELUMAB
     Indication: Renal cell carcinoma
     Dates: start: 202007, end: 20210722
  2. AVELUMAB [Suspect]
     Active Substance: AVELUMAB
     Dates: start: 20210804
  3. AXITINIB [Suspect]
     Active Substance: AXITINIB
     Indication: Renal cell carcinoma
     Dates: start: 202007, end: 20210722
  4. AXITINIB [Suspect]
     Active Substance: AXITINIB
     Dates: start: 20210804, end: 20210908

REACTIONS (8)
  - Groin pain [Unknown]
  - Condition aggravated [Unknown]
  - Arthritis [Unknown]
  - Bone pain [Unknown]
  - Back pain [Unknown]
  - Pain in extremity [Unknown]
  - Blood pressure increased [Recovering/Resolving]
  - Dysphonia [Unknown]

NARRATIVE: CASE EVENT DATE: 20200722
